FAERS Safety Report 6839174-1 (Version None)
Quarter: 2010Q3

REPORT INFORMATION
  Report Type: 
  Country: None (occurrence: None)
  Receive Date: 20100714
  Receipt Date: 20100707
  Transmission Date: 20110219
  Serious: Yes (Disabling)
  Sender: FDA-Public Use
  Company Number: US-CEPHALON-2010002434

PATIENT
  Sex: Male
  Weight: 104 kg

DRUGS (8)
  1. FENTORA [Suspect]
     Indication: PAIN
     Route: 002
     Dates: start: 20100201
  2. PROSOM [Concomitant]
     Indication: INSOMNIA
     Dates: start: 20000101
  3. ALPRAZOLAM [Concomitant]
     Indication: ANXIETY
  4. ALPRAZOLAM [Concomitant]
  5. OXYCONTIN [Concomitant]
     Indication: PAIN
  6. BUTALBITAL/ACETAMINOPHEN [Concomitant]
     Indication: HEADACHE
     Dates: start: 20000101
  7. MYCELEX [Concomitant]
     Indication: FUNGAL INFECTION
  8. PREDNISONE [Concomitant]
     Indication: RHEUMATOID ARTHRITIS
     Dates: start: 20090301

REACTIONS (5)
  - GINGIVAL BLEEDING [None]
  - GINGIVAL RECESSION [None]
  - INCORRECT ROUTE OF DRUG ADMINISTRATION [None]
  - PNEUMONIA [None]
  - SYSTEMIC LUPUS ERYTHEMATOSUS [None]
